FAERS Safety Report 8852954 (Version 1)
Quarter: 2012Q4

REPORT INFORMATION
  Report Type: 
  Country: GB (occurrence: GB)
  Receive Date: 20121022
  Receipt Date: 20121022
  Transmission Date: 20130627
  Serious: Yes (Other)
  Sender: FDA-Public Use
  Company Number: GB-MERCK-1210GBR005707

PATIENT
  Sex: Female

DRUGS (1)
  1. COZAAR 50 MG [Suspect]
     Route: 048

REACTIONS (2)
  - Neoplasm malignant [Unknown]
  - Product substitution issue [Unknown]
